FAERS Safety Report 8036762-4 (Version None)
Quarter: 2012Q1

REPORT INFORMATION
  Report Type: 
  Country: None (occurrence: None)
  Receive Date: 20120106
  Receipt Date: 20111221
  Transmission Date: 20120608
  Serious: Yes (Disabling)
  Sender: FDA-Public Use
  Company Number: GER/GER/12/ 0022504

PATIENT
  Age: 53 Year
  Sex: Male
  Weight: 61 kg

DRUGS (2)
  1. GEMCITABINE [Suspect]
     Indication: METASTATIC NEOPLASM
     Dosage: 1000 MG, INTRAVENOUS
     Route: 042
     Dates: start: 20110401, end: 20110622
  2. CISPLATIN [Suspect]
     Indication: METASTATIC NEOPLASM
     Dosage: 50 MG, INTRAVENOUS
     Route: 042
     Dates: start: 20110401, end: 20110622

REACTIONS (3)
  - ORAL MUCOSA EROSION [None]
  - LIP EROSION [None]
  - ERYTHEMA [None]
